FAERS Safety Report 9904645 (Version 1)
Quarter: 2014Q1

REPORT INFORMATION
  Report Type: Report from Study
  Country: US (occurrence: US)
  Receive Date: 20140218
  Receipt Date: 20140218
  Transmission Date: 20141002
  Serious: Yes (Hospitalization, Other)
  Sender: FDA-Public Use
  Company Number: US-PFIZER INC-2014040282

PATIENT
  Age: 51 Year
  Sex: Female

DRUGS (1)
  1. GEMCITABINE HYDROCHLORIDE [Suspect]
     Indication: PSEUDOMYXOMA PERITONEI
     Dosage: 7 OUT OF EVERY 8 WEEKS, CUMULATIVE DOSE 56 G/M2

REACTIONS (1)
  - Thrombotic microangiopathy [Recovering/Resolving]
